FAERS Safety Report 13822083 (Version 1)
Quarter: 2017Q3

REPORT INFORMATION
  Report Type: Spontaneous
  Country: FR (occurrence: FR)
  Receive Date: 20170801
  Receipt Date: 20170801
  Transmission Date: 20171127
  Serious: Yes (Other)
  Sender: FDA-Public Use
  Company Number: FR-BAYER-2017-144206

PATIENT
  Age: 33 Year
  Sex: Female

DRUGS (1)
  1. MIRENA [Suspect]
     Active Substance: LEVONORGESTREL
     Indication: CONTRACEPTION
     Dosage: 20 MCG/24HR, CONT
     Route: 015
     Dates: start: 20160629, end: 20160929

REACTIONS (8)
  - Alopecia [Recovering/Resolving]
  - Acne [Recovering/Resolving]
  - Depression [Recovering/Resolving]
  - Insomnia [Recovering/Resolving]
  - Amnesia [Recovering/Resolving]
  - Vaginal haemorrhage [Recovering/Resolving]
  - Abdominal pain [Recovering/Resolving]
  - Irritability [Recovering/Resolving]

NARRATIVE: CASE EVENT DATE: 20160801
